FAERS Safety Report 6017038-3 (Version None)
Quarter: 2008Q4

REPORT INFORMATION
  Report Type: 
  Country: None (occurrence: None)
  Receive Date: 20081223
  Receipt Date: 20081216
  Transmission Date: 20090506
  Serious: Yes (Other)
  Sender: FDA-Public Use
  Company Number: US-ASTRAZENECA-2008UW28061

PATIENT
  Age: 60 Year
  Sex: Female
  Weight: 70.3 kg

DRUGS (5)
  1. METOPROLOL SUCCINATE [Suspect]
     Indication: HYPERTENSION
     Route: 048
     Dates: start: 20040101
  2. ZOCOR [Concomitant]
  3. ASPIRIN [Concomitant]
  4. ALLEGRA [Concomitant]
  5. FLONASE [Concomitant]

REACTIONS (3)
  - ANGLE CLOSURE GLAUCOMA [None]
  - BALANCE DISORDER [None]
  - VISUAL IMPAIRMENT [None]
